FAERS Safety Report 16637589 (Version 1)
Quarter: 2019Q3

REPORT INFORMATION
  Report Type: Spontaneous
  Country: US (occurrence: US)
  Receive Date: 20190726
  Receipt Date: 20190726
  Transmission Date: 20191004
  Serious: No
  Sender: FDA-Public Use
  Company Number: US-GALDERMA-US18039746

PATIENT
  Sex: Female

DRUGS (1)
  1. DIFFERIN GEL [Suspect]
     Active Substance: ADAPALENE
     Indication: SKIN WRINKLING
     Route: 061

REACTIONS (3)
  - Product use in unapproved indication [Recovered/Resolved]
  - Product physical consistency issue [Recovered/Resolved]
  - Inappropriate schedule of product administration [Recovered/Resolved]
